FAERS Safety Report 8560443-1 (Version None)
Quarter: 2012Q3

REPORT INFORMATION
  Report Type: 
  Country: None (occurrence: None)
  Receive Date: 20120802
  Receipt Date: 20120723
  Transmission Date: 20120928
  Serious: No
  Sender: FDA-Public Use
  Company Number: US-ASTRAZENECA-2012SE51615

PATIENT
  Age: 63 Year
  Sex: Male
  Weight: 78.9 kg

DRUGS (3)
  1. NEXIUM [Suspect]
     Indication: ULCER
     Route: 048
     Dates: start: 20120520
  2. ZANTAC [Concomitant]
  3. NEXIUM [Suspect]
     Indication: INFLAMMATION
     Route: 048
     Dates: start: 20120520

REACTIONS (3)
  - ERUCTATION [None]
  - PAIN IN EXTREMITY [None]
  - ABDOMINAL PAIN UPPER [None]
